FAERS Safety Report 16880376 (Version 2)
Quarter: 2019Q4

REPORT INFORMATION
  Report Type: Spontaneous
  Country: GB (occurrence: GB)
  Receive Date: 20191003
  Receipt Date: 20191203
  Transmission Date: 20200122
  Serious: Yes (Other)
  Sender: FDA-Public Use
  Company Number: ALC2019GB000886

PATIENT

DRUGS (1)
  1. ATROPINE SULFATE. [Suspect]
     Active Substance: ATROPINE SULFATE
     Indication: PRODUCT USED FOR UNKNOWN INDICATION
     Dosage: PLENTY SOLUTION TWICE A DAY
     Route: 031

REACTIONS (6)
  - Mydriasis [Recovered/Resolved]
  - Prescription drug used without a prescription [Recovered/Resolved]
  - Vision blurred [Not Recovered/Not Resolved]
  - Headache [Unknown]
  - Ophthalmoplegia [Recovered/Resolved]
  - Product use in unapproved indication [Recovered/Resolved]
